FAERS Safety Report 7514142-5 (Version None)
Quarter: 2011Q2

REPORT INFORMATION
  Report Type: 
  Country: None (occurrence: None)
  Receive Date: 20110531
  Receipt Date: 20110525
  Transmission Date: 20111010
  Serious: No
  Sender: FDA-Public Use
  Company Number: US-BAYER-2011-045952

PATIENT
  Sex: Male

DRUGS (1)
  1. AVELOX [Suspect]
     Indication: SKIN INFECTION
     Dosage: 400 MG, QD
     Route: 048
     Dates: start: 20110501

REACTIONS (2)
  - DYSPNOEA [None]
  - URTICARIA [None]
